FAERS Safety Report 8489512-1 (Version None)
Quarter: 2012Q3

REPORT INFORMATION
  Report Type: 
  Country: None (occurrence: None)
  Receive Date: 20120705
  Receipt Date: 20120703
  Transmission Date: 20120928
  Serious: Yes (Hospitalization)
  Sender: FDA-Public Use
  Company Number: DE-BAYER-2012-065965

PATIENT
  Age: 54 Year
  Sex: Male
  Weight: 96 kg

DRUGS (7)
  1. POSACONAZOLE [Suspect]
     Indication: ANTIFUNGAL PROPHYLAXIS
     Dosage: 400 MG, BID
     Route: 048
     Dates: start: 20111220, end: 20111227
  2. PANTOPRAZOLE [Concomitant]
     Indication: GASTROOESOPHAGEAL REFLUX DISEASE
     Dosage: 40 MG, QD
     Route: 048
     Dates: start: 20111001, end: 20120108
  3. COTRIM [Concomitant]
     Indication: ANTIFUNGAL PROPHYLAXIS
     Dosage: 960 MG, TID
     Route: 048
     Dates: start: 20110301, end: 20120108
  4. CIPROFLOXACIN HCL [Suspect]
     Indication: ANTIBIOTIC PROPHYLAXIS
     Dosage: 500 MG, BID
     Route: 048
     Dates: start: 20111213, end: 20120105
  5. ACYCLOVIR [Concomitant]
     Indication: ANTIVIRAL PROPHYLAXIS
     Dosage: 400 MG, TID
     Route: 048
     Dates: start: 20110801, end: 20120105
  6. EXJADE [Suspect]
     Indication: TRANSFUSION REACTION
     Dosage: 125 MG, BID
     Route: 048
     Dates: start: 20111220, end: 20120105
  7. ATACAND [Concomitant]
     Indication: HYPERTENSION
     Dosage: 8 MG, QD
     Route: 048
     Dates: start: 20110301, end: 20120108

REACTIONS (1)
  - ACUTE HEPATIC FAILURE [None]
